FAERS Safety Report 7176721-7 (Version None)
Quarter: 2010Q4

REPORT INFORMATION
  Report Type: 
  Country: None (occurrence: None)
  Receive Date: 20101220
  Receipt Date: 20101215
  Transmission Date: 20110411
  Serious: Yes (Hospitalization, Other)
  Sender: FDA-Public Use
  Company Number: CH-PFIZER INC-2010172472

PATIENT
  Age: 66 Year
  Sex: Male

DRUGS (5)
  1. NORVASC [Suspect]
     Indication: ESSENTIAL HYPERTENSION
     Dosage: 5 MG, 1X/DAY
     Route: 048
  2. SORTIS [Suspect]
     Dosage: 40 MG, 1X/DAY
     Route: 048
     Dates: start: 20090107
  3. PLAVIX [Suspect]
     Dosage: 75 MG, 1X/DAY
     Route: 048
     Dates: start: 20090109, end: 20090128
  4. ASPIRIN [Suspect]
     Indication: ARTERIOSCLEROSIS CORONARY ARTERY
     Dosage: 100 MG, 1X/DAY
     Route: 048
     Dates: start: 20090107, end: 20090109
  5. CO-RENITEN [Suspect]
     Indication: ESSENTIAL HYPERTENSION
     Dosage: SINCE LONG TIME, ENALAPRIL 20 MG/HYDROCHLOROTHIAZIDE 12.5 MG DAILY
     Route: 048
     Dates: end: 20090109

REACTIONS (4)
  - ANGIOEDEMA [None]
  - DRUG INTERACTION [None]
  - SIMILAR REACTION ON PREVIOUS EXPOSURE TO DRUG [None]
  - TYPE I HYPERSENSITIVITY [None]
